FAERS Safety Report 18765046 (Version 1)
Quarter: 2021Q1

REPORT INFORMATION
  Report Type: Spontaneous
  Country: BE (occurrence: BE)
  Receive Date: 20210120
  Receipt Date: 20210120
  Transmission Date: 20210419
  Serious: Yes (Other)
  Sender: FDA-Public Use
  Company Number: BE-ELI_LILLY_AND_COMPANY-BE202101005618

PATIENT
  Age: 55 Year
  Sex: Male

DRUGS (2)
  1. OLUMIANT [Suspect]
     Active Substance: BARICITINIB
     Indication: PRODUCT USED FOR UNKNOWN INDICATION
     Dosage: 4 MG, DAILY
     Route: 065
     Dates: start: 20201113, end: 20201215
  2. OLUMIANT [Suspect]
     Active Substance: BARICITINIB
     Dosage: 4 MG, DAILY
     Route: 065
     Dates: start: 20201218, end: 20210104

REACTIONS (7)
  - Blood pressure increased [Unknown]
  - Insomnia [Unknown]
  - Skin burning sensation [Unknown]
  - Syncope [Unknown]
  - Decreased appetite [Unknown]
  - Tachycardia [Unknown]
  - Headache [Unknown]

NARRATIVE: CASE EVENT DATE: 202011
